FAERS Safety Report 10172071 (Version 2)
Quarter: 2014Q2

REPORT INFORMATION
  Report Type: Spontaneous
  Country: US (occurrence: US)
  Receive Date: 20140515
  Receipt Date: 20140515
  Transmission Date: 20141212
  Serious: Yes (Life-Threatening, Other)
  Sender: FDA-Public Use
  Company Number: PHHY2014US044547

PATIENT
  Sex: Female

DRUGS (8)
  1. BACLOFEN INTRATHECAL [Suspect]
     Indication: MULTIPLE SCLEROSIS
     Dosage: 85.12 UG/DAY
     Route: 037
     Dates: start: 201202
  2. IBUPROFEN [Suspect]
     Dosage: UNK UKN, UNK
     Route: 048
  3. TRAMADOL [Suspect]
     Dosage: UNK UKN, UNK
     Route: 048
  4. LISINOPRIL [Suspect]
     Dosage: UNK UKN, UNK
     Route: 048
  5. TRAZODONE [Suspect]
     Dosage: UNK UKN, UNK
     Route: 048
  6. MORPHINE [Suspect]
     Dosage: 0.85 MG/DAY
     Route: 037
  7. CYMBALTA [Suspect]
     Dosage: UNK UKN, UNK
     Route: 048
  8. DRUG THERAPY NOS [Suspect]
     Indication: PAIN
     Dosage: UNK UKN, UNK
     Route: 048

REACTIONS (4)
  - Unresponsive to stimuli [Recovering/Resolving]
  - Depressed level of consciousness [Recovering/Resolving]
  - Confusional state [Recovering/Resolving]
  - Overdose [Recovering/Resolving]
